FAERS Safety Report 5283651-4 (Version None)
Quarter: 2007Q1

REPORT INFORMATION
  Report Type: 
  Country: None (occurrence: None)
  Receive Date: 20061226
  Receipt Date: 20061011
  Transmission Date: 20070707
  Serious: No
  Sender: FDA-Public Use
  Company Number: 2006PV022929

PATIENT
  Age: 66 Year
  Sex: Female

DRUGS (2)
  1. SYMLIN [Suspect]
     Indication: DRUG USE FOR UNKNOWN INDICATION
     Dosage: 60 MCG; TID; SC
     Route: 058
     Dates: start: 20060710
  2. OTHER INSULINS NOS [Concomitant]

REACTIONS (2)
  - SKIN DISORDER [None]
  - URINE ODOUR ABNORMAL [None]
